FAERS Safety Report 20603258 (Version 1)
Quarter: 2022Q1

REPORT INFORMATION
  Report Type: Spontaneous
  Country: PT (occurrence: PT)
  Receive Date: 20220316
  Receipt Date: 20220316
  Transmission Date: 20220423
  Serious: No
  Sender: FDA-Public Use
  Company Number: PT-LUPIN PHARMACEUTICALS INC.-2022-03583

PATIENT
  Age: 6 Year
  Sex: Male

DRUGS (7)
  1. METHYLPREDNISOLONE [Suspect]
     Active Substance: METHYLPREDNISOLONE
     Indication: Psoriasis
     Dosage: UNK (OINTMENT)
     Route: 061
  2. METHYLPREDNISOLONE [Suspect]
     Active Substance: METHYLPREDNISOLONE
     Indication: IgA nephropathy
     Dosage: 30 MILLIGRAM/KILOGRAM, QD (THREE METHYLPREDNISOLONE PULSES WERE ADMINISTERED) ((OINTMENT))
     Route: 065
  3. PREDNISOLONE [Suspect]
     Active Substance: PREDNISOLONE
     Indication: IgA nephropathy
     Dosage: 60 MILLIGRAM/SQ. METER, QD
     Route: 048
  4. PREDNISOLONE [Suspect]
     Active Substance: PREDNISOLONE
     Indication: Psoriasis
     Dosage: UNK (GRADUAL TAPERING PHASE)
     Route: 048
  5. MOMETASONE [Suspect]
     Active Substance: MOMETASONE
     Indication: Rebound psoriasis
     Dosage: UNK
     Route: 061
  6. CALCITRIOL [Suspect]
     Active Substance: CALCITRIOL
     Indication: Rebound psoriasis
     Dosage: UNK
     Route: 061
  7. CYCLOPHOSPHAMIDE [Concomitant]
     Active Substance: CYCLOPHOSPHAMIDE
     Indication: IgA nephropathy
     Dosage: 2 MILLIGRAM/KILOGRAM, QD
     Route: 065

REACTIONS (1)
  - Off label use [Unknown]
